FAERS Safety Report 19739829 (Version 2)
Quarter: 2021Q3

REPORT INFORMATION
  Report Type: Report from Study
  Country: CO (occurrence: CO)
  Receive Date: 20210823
  Receipt Date: 20210929
  Transmission Date: 20211014
  Serious: Yes (Life-Threatening, Hospitalization, Other)
  Sender: FDA-Public Use
  Company Number: NVSC2021CO190092

PATIENT
  Age: 63 Year
  Sex: Female
  Weight: 58 kg

DRUGS (4)
  1. EVEROLIMUS. [Suspect]
     Active Substance: EVEROLIMUS
     Indication: BREAST CANCER
     Dosage: UNK
     Route: 065
  2. AMLODIPINE [Concomitant]
     Active Substance: AMLODIPINE BESYLATE
     Indication: HYPERTENSION
     Dosage: 10 MG, QD (STARTED 11 YEARS AGO)
     Route: 048
  3. FEMARA [Suspect]
     Active Substance: LETROZOLE
     Indication: BREAST CANCER
     Dosage: 2.5 MG, QD (STARTED 09 YEARS AGO)
     Route: 048
     Dates: end: 20210916
  4. METOPROLOL. [Suspect]
     Active Substance: METOPROLOL
     Indication: PRODUCT USED FOR UNKNOWN INDICATION
     Dosage: 50 MG, QD (STARTED 09 YEARS AGO)
     Route: 048

REACTIONS (7)
  - Pulmonary oedema [Unknown]
  - Malaise [Unknown]
  - Choking [Unknown]
  - Discouragement [Unknown]
  - Dizziness [Unknown]
  - Metastases to lung [Unknown]
  - Fatigue [Unknown]

NARRATIVE: CASE EVENT DATE: 202104
